FAERS Safety Report 4985937-7 (Version None)
Quarter: 2006Q2

REPORT INFORMATION
  Report Type: 
  Country: None (occurrence: None)
  Receive Date: 20060428
  Receipt Date: 20060418
  Transmission Date: 20061013
  Serious: Yes (Death, Life-Threatening, Hospitalization)
  Sender: FDA-Public Use
  Company Number: SE-JNJFOC-20050201060

PATIENT
  Age: 74 Year
  Sex: Female

DRUGS (12)
  1. REMICADE [Suspect]
     Indication: RHEUMATOID ARTHRITIS
     Dosage: 200-300MG DAILY
     Route: 042
     Dates: start: 20011110, end: 20040914
  2. METHOTREXATE [Suspect]
     Indication: RHEUMATOID ARTHRITIS
     Route: 048
     Dates: start: 20010101, end: 20040914
  3. PRAVACHOL [Concomitant]
  4. TRIATEC [Concomitant]
  5. FOSAMAX [Concomitant]
  6. FOLACIN [Concomitant]
  7. FOLACIN [Concomitant]
  8. FUROSEMIDE [Concomitant]
  9. LANSOPRAZOLE [Concomitant]
  10. IDEOS [Concomitant]
  11. IDEOS [Concomitant]
  12. PREDNISOLONE [Concomitant]

REACTIONS (3)
  - ALVEOLITIS FIBROSING [None]
  - ASPERGILLOSIS [None]
  - PNEUMONITIS [None]
